FAERS Safety Report 14784320 (Version 2)
Quarter: 2018Q2

REPORT INFORMATION
  Report Type: Spontaneous
  Country: US (occurrence: US)
  Receive Date: 20180420
  Receipt Date: 20180528
  Transmission Date: 20180711
  Serious: No
  Sender: FDA-Public Use
  Company Number: US-ASTRAZENECA-2018SE38436

PATIENT
  Sex: Female
  Weight: 63.5 kg

DRUGS (1)
  1. BYDUREON [Suspect]
     Active Substance: EXENATIDE
     Indication: BLOOD GLUCOSE INCREASED
     Route: 065
     Dates: start: 2017

REACTIONS (6)
  - Agitation [Unknown]
  - Device malfunction [Unknown]
  - Feeling abnormal [Unknown]
  - Weight decreased [Unknown]
  - Underdose [Unknown]
  - Wrong technique in product usage process [Unknown]
